FAERS Safety Report 20606450 (Version 2)
Quarter: 2022Q2

REPORT INFORMATION
  Report Type: Report from Study
  Country: US (occurrence: None)
  Receive Date: 20220317
  Receipt Date: 20220509
  Transmission Date: 20220721
  Serious: Yes (Hospitalization)
  Sender: FDA-Public Use
  Company Number: US-ROCHE-3049286

PATIENT
  Age: 78 Year
  Sex: Male
  Weight: 92.5 kg

DRUGS (4)
  1. VENETOCLAX [Suspect]
     Active Substance: VENETOCLAX
     Indication: Chronic lymphocytic leukaemia
     Dosage: LAST DOSE WAS RECEIVED ON 28/DEC/2021
     Route: 065
     Dates: start: 20210406
  2. ACALABRUTINIB [Suspect]
     Active Substance: ACALABRUTINIB
     Indication: Chronic lymphocytic leukaemia
     Dosage: LAST DOSE WAS RECEIVED ON 11/JAN/2022
     Route: 065
     Dates: start: 20210406
  3. AZITHROMYCIN [Concomitant]
     Active Substance: AZITHROMYCIN
     Route: 042
  4. ATOVAQUONE [Concomitant]
     Active Substance: ATOVAQUONE
     Route: 042

REACTIONS (2)
  - Anaemia [Recovered/Resolved]
  - Babesiosis [Recovered/Resolved]

NARRATIVE: CASE EVENT DATE: 20220223
